FAERS Safety Report 9526597 (Version 1)
Quarter: 2013Q3

REPORT INFORMATION
  Report Type: Spontaneous
  Country: FR (occurrence: FR)
  Receive Date: 20130916
  Receipt Date: 20130916
  Transmission Date: 20140515
  Serious: Yes (Life-Threatening, Hospitalization)
  Sender: FDA-Public Use
  Company Number: FR-ROCHE-1273066

PATIENT
  Age: 32 Year
  Sex: Female

DRUGS (9)
  1. KYTRIL [Suspect]
     Indication: NAUSEA
     Route: 048
     Dates: start: 20130820, end: 20130821
  2. PARACETAMOL [Suspect]
     Indication: BACK PAIN
     Route: 042
     Dates: start: 20130815, end: 20130821
  3. OXYCODONE [Suspect]
     Indication: BACK PAIN
     Route: 065
  4. PRIMPERAN (FRANCE) [Suspect]
     Indication: NAUSEA
     Route: 042
     Dates: start: 20130820, end: 20130821
  5. INEXIUM [Suspect]
     Indication: NAUSEA
     Route: 042
     Dates: start: 20130820, end: 20130821
  6. INEXIUM [Suspect]
     Indication: VOMITING
  7. CRIZOTINIB [Suspect]
     Indication: LUNG ADENOCARCINOMA
     Route: 048
     Dates: start: 201209, end: 20130821
  8. PROZAC [Suspect]
     Indication: ANXIETY
     Route: 048
     Dates: start: 201301, end: 20130821
  9. PROZAC [Suspect]
     Indication: DEPRESSION

REACTIONS (1)
  - Hepatitis acute [Not Recovered/Not Resolved]
